FAERS Safety Report 10183332 (Version 4)
Quarter: 2016Q1

REPORT INFORMATION
  Report Type: Spontaneous
  Country: US (occurrence: US)
  Receive Date: 20140520
  Receipt Date: 20160226
  Transmission Date: 20160525
  Serious: Yes (Hospitalization, Disabling, Other)
  Sender: FDA-Public Use
  Company Number: US-009507513-1405USA006476

PATIENT
  Sex: Female
  Weight: 86.17 kg

DRUGS (8)
  1. ALENDRONATE SODIUM. [Suspect]
     Active Substance: ALENDRONATE SODIUM
     Dosage: 70 MG, UNK
     Route: 048
     Dates: start: 20101202, end: 20110810
  2. ALENDRONATE SODIUM. [Suspect]
     Active Substance: ALENDRONATE SODIUM
     Indication: PROPHYLAXIS
     Dosage: 70 MG, UNK
     Route: 048
     Dates: start: 200801, end: 20091119
  3. CALCIUM (UNSPECIFIED) [Concomitant]
     Active Substance: CALCIUM
     Indication: PRODUCT USED FOR UNKNOWN INDICATION
     Dosage: 1 DF, QD
     Route: 048
     Dates: start: 2000
  4. ONE-A-DAY WOMENS 50 PLUS ADVANTAGE [Concomitant]
     Indication: PRODUCT USED FOR UNKNOWN INDICATION
     Dosage: 1 DF, QD
     Route: 048
     Dates: start: 2000
  5. FOSAMAX [Suspect]
     Active Substance: ALENDRONATE SODIUM
     Indication: PROPHYLAXIS
     Dosage: 70 MG, QW
     Route: 048
     Dates: start: 20071011, end: 200712
  6. ALENDRONATE SODIUM. [Suspect]
     Active Substance: ALENDRONATE SODIUM
     Dosage: 35 MG, UNK
     Route: 048
     Dates: start: 20100115, end: 20101105
  7. FOSAMAX [Suspect]
     Active Substance: ALENDRONATE SODIUM
     Dosage: 10 MG, QD
     Route: 048
  8. ALENDRONATE SODIUM. [Suspect]
     Active Substance: ALENDRONATE SODIUM
     Dosage: 10 MG, UNK
     Route: 048
     Dates: start: 20101008

REACTIONS (28)
  - Humerus fracture [Recovered/Resolved]
  - Urinary tract infection [Recovered/Resolved]
  - Liposarcoma [Unknown]
  - Dysuria [Unknown]
  - Meniscus injury [Unknown]
  - Cataract [Unknown]
  - Arthritis [Unknown]
  - Femur fracture [Recovering/Resolving]
  - Haemoglobin decreased [Recovering/Resolving]
  - Blood albumin decreased [Recovered/Resolved]
  - Hysterectomy [Unknown]
  - Pyrexia [Recovered/Resolved]
  - Hypoaesthesia [Unknown]
  - Blood cholesterol increased [Unknown]
  - Intramedullary rod insertion [Unknown]
  - Low turnover osteopathy [Unknown]
  - Osteoarthritis [Unknown]
  - Transient ischaemic attack [Recovered/Resolved]
  - Headache [Unknown]
  - Cancer surgery [Unknown]
  - Appendicectomy [Unknown]
  - Hypertension [Unknown]
  - Dyslipidaemia [Unknown]
  - Groin pain [Unknown]
  - Gastrooesophageal reflux disease [Unknown]
  - Blister [Unknown]
  - Osteopenia [Unknown]
  - Increased tendency to bruise [Unknown]

NARRATIVE: CASE EVENT DATE: 2009
